FAERS Safety Report 6481110-4 (Version None)
Quarter: 2009Q4

REPORT INFORMATION
  Report Type: 
  Country: None (occurrence: None)
  Receive Date: 20091208
  Receipt Date: 20090424
  Transmission Date: 20100525
  Serious: No
  Sender: FDA-Public Use
  Company Number: US-AMGEN-KDL337668

PATIENT
  Sex: Female

DRUGS (6)
  1. ENBREL [Suspect]
     Indication: RHEUMATOID ARTHRITIS
     Route: 058
     Dates: start: 20090114
  2. CYMBALTA [Suspect]
  3. PREDNISONE [Concomitant]
  4. FOSAMAX [Concomitant]
  5. TAMOXIFEN CITRATE [Concomitant]
  6. LUNESTA [Concomitant]

REACTIONS (1)
  - CONSTIPATION [None]
